FAERS Safety Report 5931337-2 (Version None)
Quarter: 2008Q4

REPORT INFORMATION
  Report Type: 
  Country: None (occurrence: None)
  Receive Date: 20081027
  Receipt Date: 20081017
  Transmission Date: 20090506
  Serious: Yes (Other)
  Sender: FDA-Public Use
  Company Number: JP-MERCK-0810USA03869

PATIENT
  Age: 67 Year
  Sex: Female

DRUGS (10)
  1. FOSAMAX [Suspect]
     Indication: OSTEOPOROSIS
     Route: 048
     Dates: start: 20070110, end: 20081001
  2. AMLODIN [Concomitant]
     Indication: HYPERTENSION
     Route: 048
     Dates: start: 20070101, end: 20080401
  3. CALBLOCK [Concomitant]
     Indication: HYPERTENSION
     Route: 048
     Dates: start: 20080402
  4. NORVASC [Concomitant]
     Indication: HYPERTENSION
     Route: 048
     Dates: start: 20070101
  5. OXAZOLAM [Concomitant]
     Indication: HYPERTENSION
     Route: 048
     Dates: start: 20070101
  6. ARTIST [Concomitant]
     Indication: HYPERTENSION
     Route: 048
     Dates: start: 20070101
  7. VASOLAN [Concomitant]
     Indication: ARRHYTHMIA
     Route: 048
     Dates: start: 20070101
  8. [THERAPY UNSPECIFIED] [Concomitant]
     Indication: GASTRITIS PROPHYLAXIS
     Route: 048
     Dates: start: 20070101
  9. LIVALO [Concomitant]
     Indication: HYPERLIPIDAEMIA
     Route: 048
     Dates: end: 20080701
  10. SIMVASTATIN [Concomitant]
     Indication: HYPERLIPIDAEMIA
     Route: 048

REACTIONS (1)
  - PLATELET COUNT DECREASED [None]
